FAERS Safety Report 7400686-3 (Version None)
Quarter: 2011Q2

REPORT INFORMATION
  Report Type: 
  Country: None (occurrence: None)
  Receive Date: 20110407
  Receipt Date: 20101022
  Transmission Date: 20111010
  Serious: Yes (Other)
  Sender: FDA-Public Use
  Company Number: A0889214A

PATIENT
  Sex: Female

DRUGS (5)
  1. AVANDIA [Suspect]
     Route: 048
     Dates: start: 20001001, end: 20080601
  2. HYDROCHLOROTHIAZIDE [Concomitant]
  3. GLUCOVANCE [Concomitant]
  4. TIAZAC [Concomitant]
  5. AVAPRO [Concomitant]

REACTIONS (2)
  - SINUS BRADYCARDIA [None]
  - BUNDLE BRANCH BLOCK BILATERAL [None]
